FAERS Safety Report 15806683 (Version 9)
Quarter: 2020Q3

REPORT INFORMATION
  Report Type: Report from Study
  Country: BR (occurrence: BR)
  Receive Date: 20190110
  Receipt Date: 20200916
  Transmission Date: 20201102
  Serious: Yes (Disabling, Other)
  Sender: FDA-Public Use
  Company Number: PHHY2019BR001508

PATIENT
  Age: 66 Year
  Sex: Female
  Weight: 52 kg

DRUGS (11)
  1. COSENTYX [Suspect]
     Active Substance: SECUKINUMAB
     Indication: PSORIASIS
     Dosage: UNK UNK, UNKNOWN
     Route: 065
     Dates: start: 201812
  2. COSENTYX [Suspect]
     Active Substance: SECUKINUMAB
     Dosage: UNK UNK, QMO
     Route: 065
     Dates: start: 201903
  3. COSENTYX [Suspect]
     Active Substance: SECUKINUMAB
     Dosage: UNK UNK, UNKNOWN
     Route: 065
     Dates: start: 20200604
  4. COSENTYX [Suspect]
     Active Substance: SECUKINUMAB
     Dosage: UNK UNK, QMO
     Route: 065
     Dates: start: 20190904
  5. ALLOPURINOL. [Suspect]
     Active Substance: ALLOPURINOL
     Indication: GOUT
     Dosage: UNK
     Route: 065
  6. COSENTYX [Suspect]
     Active Substance: SECUKINUMAB
     Dosage: UNK UNK, QW
     Route: 065
  7. COSENTYX [Suspect]
     Active Substance: SECUKINUMAB
     Dosage: UNK UNK, UNKNOWN
     Route: 065
     Dates: start: 20191004
  8. COSENTYX [Suspect]
     Active Substance: SECUKINUMAB
     Dosage: 300 MG, Q4W
     Route: 058
  9. COSENTYX [Suspect]
     Active Substance: SECUKINUMAB
     Dosage: UNK UNK, QW
     Route: 065
     Dates: start: 20181213, end: 201902
  10. COSENTYX [Suspect]
     Active Substance: SECUKINUMAB
     Indication: PSORIATIC ARTHROPATHY
     Dosage: 300 MG, QW
     Route: 058
  11. OMEPRAZOLE. [Concomitant]
     Active Substance: OMEPRAZOLE
     Indication: GASTRIC DISORDER
     Dosage: UNK, QD
     Route: 065

REACTIONS (63)
  - Vomiting [Unknown]
  - Abdominal pain [Unknown]
  - Acarodermatitis [Recovered/Resolved]
  - Hernia [Unknown]
  - Chronic sinusitis [Unknown]
  - Pruritus [Recovered/Resolved]
  - Thyroid disorder [Unknown]
  - Hair growth abnormal [Unknown]
  - Inappropriate schedule of product administration [Recovered/Resolved]
  - Arthritis [Unknown]
  - Infection [Recovered/Resolved]
  - Swelling face [Recovered/Resolved]
  - Tooth disorder [Not Recovered/Not Resolved]
  - Pyrexia [Recovered/Resolved]
  - Hypersensitivity [Unknown]
  - Headache [Unknown]
  - Throat irritation [Recovering/Resolving]
  - Pruritus [Unknown]
  - Osteoarthritis [Unknown]
  - Gait disturbance [Unknown]
  - Vision blurred [Recovered/Resolved]
  - Secretion discharge [Recovered/Resolved]
  - Feeding disorder [Not Recovered/Not Resolved]
  - Movement disorder [Recovered/Resolved]
  - Diabetes mellitus [Not Recovered/Not Resolved]
  - Arthralgia [Unknown]
  - Anosmia [Recovered/Resolved]
  - Intervertebral disc protrusion [Unknown]
  - Depression [Unknown]
  - Dental caries [Not Recovered/Not Resolved]
  - Dizziness [Unknown]
  - Malaise [Unknown]
  - Alopecia [Unknown]
  - Limb discomfort [Unknown]
  - Gout [Not Recovered/Not Resolved]
  - Bone disorder [Unknown]
  - Nervousness [Unknown]
  - Joint stiffness [Recovered/Resolved]
  - Suspected COVID-19 [Recovered/Resolved]
  - Headache [Recovered/Resolved]
  - Night blindness [Unknown]
  - Dyspepsia [Unknown]
  - Spinal disorder [Unknown]
  - Osteopenia [Unknown]
  - Erythema [Unknown]
  - Rheumatic disorder [Unknown]
  - Toothache [Recovered/Resolved]
  - Decreased appetite [Recovered/Resolved]
  - Muscle spasms [Recovering/Resolving]
  - Renal cyst [Unknown]
  - Skin mass [Unknown]
  - Macule [Unknown]
  - Therapeutic product effect incomplete [Unknown]
  - Loss of consciousness [Unknown]
  - Gait inability [Not Recovered/Not Resolved]
  - Viral infection [Unknown]
  - Cough [Unknown]
  - Pyrexia [Recovered/Resolved]
  - Bone density decreased [Unknown]
  - Psoriasis [Unknown]
  - Feeling abnormal [Recovered/Resolved]
  - Osteoporosis [Unknown]
  - Pain [Recovered/Resolved]

NARRATIVE: CASE EVENT DATE: 20181213
